FAERS Safety Report 16160966 (Version 1)
Quarter: 2019Q2

REPORT INFORMATION
  Report Type: Spontaneous
  Country: IN (occurrence: IN)
  Receive Date: 20190405
  Receipt Date: 20190405
  Transmission Date: 20190711
  Serious: Yes (Hospitalization, Other)
  Sender: FDA-Public Use
  Company Number: IN-CIPLA LTD.-2015IN08914

PATIENT

DRUGS (2)
  1. VALPROIC ACID. [Interacting]
     Active Substance: VALPROIC ACID
     Indication: SEIZURE
     Dosage: 600 MILLIGRAM, PER DAY
     Route: 065
  2. LAMOTRIGINE. [Suspect]
     Active Substance: LAMOTRIGINE
     Indication: SEIZURE
     Dosage: 25 MILLIGRAM, PER DAY
     Route: 065

REACTIONS (3)
  - Stevens-Johnson syndrome [Recovered/Resolved]
  - Drug interaction [Unknown]
  - Drug ineffective [Unknown]
